FAERS Safety Report 10644341 (Version 2)
Quarter: 2015Q2

REPORT INFORMATION
  Report Type: Report from Study
  Country: US (occurrence: US)
  Receive Date: 20141210
  Receipt Date: 20150421
  Transmission Date: 20150821
  Serious: Yes (Other)
  Sender: FDA-Public Use
  Company Number: US-GLAXOSMITHKLINE-US2014032356

PATIENT
  Age: 46 Year
  Sex: Male
  Weight: 83.8 kg

DRUGS (2)
  1. PAZOPANIB FILM-COATED TABLET [Suspect]
     Active Substance: PAZOPANIB
     Indication: RENAL CELL CARCINOMA
     Dosage: 600 MG, QD
     Dates: start: 20141021
  2. MK-3475 SOLUTION FOR INFUSION [Suspect]
     Active Substance: PEMBROLIZUMAB
     Indication: RENAL CELL CARCINOMA
     Dosage: 2 MG/KG, UNK
     Dates: start: 20141021

REACTIONS (1)
  - Alanine aminotransferase increased [Recovered/Resolved with Sequelae]

NARRATIVE: CASE EVENT DATE: 20141205
